FAERS Safety Report 7656159-6 (Version None)
Quarter: 2011Q3

REPORT INFORMATION
  Report Type: 
  Country: None (occurrence: None)
  Receive Date: 20110804
  Receipt Date: 20110802
  Transmission Date: 20111222
  Serious: No
  Sender: FDA-Public Use
  Company Number: US-PFIZER INC-2011176513

PATIENT
  Sex: Female
  Weight: 65.8 kg

DRUGS (7)
  1. EFFEXOR XR [Concomitant]
     Dosage: 75 MG, UNK
  2. ZOCOR [Concomitant]
     Indication: BLOOD CHOLESTEROL INCREASED
     Dosage: 10 MG, UNK
  3. AZITHROMYCIN [Concomitant]
     Dosage: UNK
  4. GLUCOSAMINE [Concomitant]
     Dosage: UNK
  5. LYRICA [Suspect]
     Indication: NEURALGIA
     Dosage: 50MG ONE ORAL CAPSULE IN THE MORNING AND TWO ORAL CAPSULES AT BED TIME
     Route: 048
     Dates: start: 20110721
  6. SYNTHROID [Concomitant]
     Indication: HYPOTHYROIDISM
     Dosage: UNK
  7. CALCIUM [Concomitant]
     Dosage: UNK

REACTIONS (3)
  - SOMNOLENCE [None]
  - DRUG INEFFECTIVE [None]
  - BACK PAIN [None]
